FAERS Safety Report 7285721-8 (Version None)
Quarter: 2011Q1

REPORT INFORMATION
  Report Type: 
  Country: None (occurrence: None)
  Receive Date: 20110210
  Receipt Date: 20110210
  Transmission Date: 20110831
  Serious: Yes (Other)
  Sender: FDA-Public Use
  Company Number: D0070174A

PATIENT
  Sex: Female
  Weight: 54 kg

DRUGS (4)
  1. PANTOPRAZOL [Concomitant]
     Indication: GASTRITIS
     Dosage: 40MG PER DAY
     Route: 065
  2. REVOLADE [Suspect]
     Indication: AUTOIMMUNE THROMBOCYTOPENIA
     Dosage: 50MG PER DAY
     Route: 048
     Dates: start: 20101220, end: 20110131
  3. CORTISONE [Concomitant]
     Route: 065
  4. CALCIUM/VITAMIN D [Concomitant]
     Indication: OSTEOPOROSIS
     Route: 065

REACTIONS (1)
  - THROMBOCYTOSIS [None]
